FAERS Safety Report 5186650-6 (Version None)
Quarter: 2006Q4

REPORT INFORMATION
  Report Type: 
  Country: None (occurrence: None)
  Receive Date: 20061220
  Receipt Date: 20060227
  Transmission Date: 20070319
  Serious: No
  Sender: FDA-Public Use
  Company Number: US-AMGEN-US170426

PATIENT
  Age: 21 Year
  Sex: Female

DRUGS (1)
  1. ENBREL [Suspect]
     Indication: PSORIASIS
     Dates: start: 20060101

REACTIONS (5)
  - ALOPECIA [None]
  - CONDITION AGGRAVATED [None]
  - PSORIASIS [None]
  - THERAPEUTIC RESPONSE DECREASED [None]
  - THERAPY REGIMEN CHANGED [None]
